FAERS Safety Report 8493838-5 (Version None)
Quarter: 2012Q3

REPORT INFORMATION
  Report Type: 
  Country: None (occurrence: None)
  Receive Date: 20120706
  Receipt Date: 20120629
  Transmission Date: 20120928
  Serious: Yes (Hospitalization, Other)
  Sender: FDA-Public Use
  Company Number: PHHY2012AT056150

PATIENT
  Age: 14 Year
  Sex: Female

DRUGS (1)
  1. AMLODIPINE [Suspect]
     Dosage: 6 DF, ONCE/SINGLE

REACTIONS (6)
  - PARAESTHESIA [None]
  - BLOOD PRESSURE INCREASED [None]
  - VOMITING [None]
  - INTENTIONAL OVERDOSE [None]
  - NAUSEA [None]
  - ABDOMINAL PAIN UPPER [None]
